FAERS Safety Report 4367869-0 (Version None)
Quarter: 2004Q2

REPORT INFORMATION
  Report Type: 
  Country: None (occurrence: None)
  Receive Date: 20040601
  Receipt Date: 20040601
  Transmission Date: 20050107
  Serious: Yes (Hospitalization)
  Sender: FDA-Public Use
  Company Number: None

PATIENT
  Sex: Female
  Weight: 64.4108 kg

DRUGS (3)
  1. VIOXX [Suspect]
     Indication: ARTHRALGIA
     Dosage: 1 1 ORAL
     Route: 048
     Dates: start: 20040424, end: 20040430
  2. VIOXX [Suspect]
     Indication: CYST
     Dosage: 1 1 ORAL
     Route: 048
     Dates: start: 20040424, end: 20040430
  3. WELLBUTRIN [Suspect]
     Indication: DEPRESSION
     Dosage: 1 1 ORAL
     Route: 048
     Dates: start: 20040408, end: 20040502

REACTIONS (3)
  - DRUG INEFFECTIVE [None]
  - FUNGAL INFECTION [None]
  - STEVENS-JOHNSON SYNDROME [None]
